FAERS Safety Report 8360410-7 (Version None)
Quarter: 2012Q1

REPORT INFORMATION
  Report Type: 
  Country: None (occurrence: None)
  Receive Date: 20120323
  Receipt Date: 20110429
  Transmission Date: 20120608
  Serious: Yes (Hospitalization, Other)
  Sender: FDA-Public Use
  Company Number: 163-21880-11042611

PATIENT
  Age: 62 Year
  Sex: Female

DRUGS (17)
  1. CITALOPRAM HYDROBROMIDE [Concomitant]
  2. DEXAMETHASONE [Concomitant]
  3. COLACE (DOCUSATE SODIUM) [Concomitant]
  4. STOOL SOFTENER (DOCUSATE SODIUM) [Concomitant]
  5. CELEBREX [Concomitant]
  6. PRINZIDE [Concomitant]
  7. TRAMADOL HCL [Concomitant]
  8. REVLIMID [Suspect]
     Indication: MULTIPLE MYELOMA
     Dosage: 25 MG, DAILY X 21 DAYS, PO
     Route: 048
     Dates: start: 20091017, end: 20110322
  9. CYCLOBENZAPRINE [Concomitant]
  10. FERREX (POLY SACCHARIDE-IRON COMPLEX) [Concomitant]
  11. ACETAMINOPHEN [Concomitant]
  12. ASPIRIN [Concomitant]
  13. LEXAPRO [Concomitant]
  14. VITAMIN D [Concomitant]
  15. XANAX [Concomitant]
  16. ZANTAC [Concomitant]
  17. IBUPROFEN (ADVIL) [Concomitant]

REACTIONS (8)
  - DEHYDRATION [None]
  - SPEECH DISORDER [None]
  - DYSURIA [None]
  - OEDEMA PERIPHERAL [None]
  - TREMOR [None]
  - DIZZINESS [None]
  - VISION BLURRED [None]
  - DYSPNOEA [None]
